FAERS Safety Report 22616017 (Version 1)
Quarter: 2023Q2

REPORT INFORMATION
  Report Type: Spontaneous
  Country: CA (occurrence: CA)
  Receive Date: 20230619
  Receipt Date: 20230619
  Transmission Date: 20230722
  Serious: Yes (Death, Hospitalization, Other)
  Sender: FDA-Public Use
  Company Number: CA-TEVA-2023-CA-2897784

PATIENT
  Age: 39 Year
  Sex: Male

DRUGS (1)
  1. CEPHALEXIN [Suspect]
     Active Substance: CEPHALEXIN
     Indication: Cellulitis
     Dosage: 2000 MILLIGRAM DAILY;
     Route: 065

REACTIONS (8)
  - Acute kidney injury [Fatal]
  - Hepatic failure [Fatal]
  - Hepatic steatosis [Fatal]
  - Hepatomegaly [Fatal]
  - Jaundice [Fatal]
  - Oedema peripheral [Fatal]
  - Portal hypertension [Fatal]
  - Splenomegaly [Fatal]
